FAERS Safety Report 8880838 (Version 1)
Quarter: 2012Q4

REPORT INFORMATION
  Report Type: 
  Country: GB (occurrence: GB)
  Receive Date: 20121101
  Receipt Date: 20121101
  Transmission Date: 20130627
  Serious: Yes (Hospitalization)
  Sender: FDA-Public Use
  Company Number: GB-PFIZER INC-2012266161

PATIENT
  Age: 73 Year
  Sex: Male
  Weight: 78 kg

DRUGS (5)
  1. SUNITINIB MALATE [Suspect]
     Indication: METASTATIC RENAL CELL CARCINOMA
     Dosage: 50 mg, 1x/day
     Route: 048
     Dates: start: 20120918, end: 20121013
  2. AMITRIPTYLINE [Concomitant]
  3. RANITIDINE [Concomitant]
  4. ALLOPURINOL [Concomitant]
  5. PERINDOPRIL [Concomitant]

REACTIONS (4)
  - Upper gastrointestinal haemorrhage [Recovered/Resolved]
  - Haematemesis [Unknown]
  - Oesophageal stenosis [Unknown]
  - Oesophageal ulcer [Unknown]
